FAERS Safety Report 15832898 (Version 1)
Quarter: 2019Q1

REPORT INFORMATION
  Report Type: Spontaneous
  Country: US (occurrence: US)
  Receive Date: 20190116
  Receipt Date: 20190116
  Transmission Date: 20190417
  Serious: No
  Sender: FDA-Public Use
  Company Number: US-BAYER-2019-002463

PATIENT
  Age: 75 Year
  Sex: Male
  Weight: 91 kg

DRUGS (1)
  1. MIRALAX [Suspect]
     Active Substance: POLYETHYLENE GLYCOL 3350
     Dosage: 17 G, QD
     Route: 065

REACTIONS (2)
  - Therapeutic response unexpected [Unknown]
  - Product used for unknown indication [Unknown]
